FAERS Safety Report 10013904 (Version 1)
Quarter: 2014Q1

REPORT INFORMATION
  Report Type: Spontaneous
  Country: US (occurrence: US)
  Receive Date: 20140316
  Receipt Date: 20140316
  Transmission Date: 20141002
  Serious: No
  Sender: FDA-Public Use
  Company Number: US-009507513-1403USA003066

PATIENT
  Age: 16 Year
  Sex: Female
  Weight: 45.35 kg

DRUGS (3)
  1. IMPLANON [Suspect]
     Indication: CONTRACEPTION
     Dosage: 68 MG/ ONE ROD INSERTED,EVERY THREE YEARS
     Route: 059
     Dates: start: 2013
  2. ADVAIR [Concomitant]
  3. SINGULAIR [Concomitant]
     Route: 048

REACTIONS (4)
  - Secretion discharge [Not Recovered/Not Resolved]
  - Depression [Not Recovered/Not Resolved]
  - Implant site pruritus [Not Recovered/Not Resolved]
  - Menorrhagia [Not Recovered/Not Resolved]
